FAERS Safety Report 9339306 (Version 1)
Quarter: 2013Q2

REPORT INFORMATION
  Report Type: Spontaneous
  Country: FR (occurrence: FR)
  Receive Date: 20130610
  Receipt Date: 20130610
  Transmission Date: 20140414
  Serious: Yes (Hospitalization)
  Sender: FDA-Public Use
  Company Number: PHHY2013FR057989

PATIENT
  Age: 59 Year
  Sex: Male

DRUGS (2)
  1. TEGRETOL [Suspect]
     Indication: EPILEPSY
     Route: 048
     Dates: start: 20130423, end: 20130518
  2. NOCTAMIDE [Concomitant]

REACTIONS (3)
  - Cholestasis [Not Recovered/Not Resolved]
  - Basophil count increased [Not Recovered/Not Resolved]
  - Eosinophilia [Not Recovered/Not Resolved]
